FAERS Safety Report 5649939-X (Version None)
Quarter: 2008Q1

REPORT INFORMATION
  Report Type: 
  Country: None (occurrence: None)
  Receive Date: 20080304
  Receipt Date: 20080225
  Transmission Date: 20080703
  Serious: Yes (Hospitalization, Disabling)
  Sender: FDA-Public Use
  Company Number: US-MERCK-0705USA00017

PATIENT
  Sex: Female
  Weight: 100 kg

DRUGS (21)
  1. FOSAMAX [Suspect]
     Indication: OSTEOPOROSIS
     Route: 048
     Dates: end: 20070617
  2. FOSAMAX [Suspect]
     Route: 048
     Dates: start: 19980901
  3. FOSAMAX [Suspect]
     Route: 048
     Dates: start: 19991216
  4. FOSAMAX [Suspect]
     Route: 048
     Dates: start: 19970101
  5. PERIOGARD [Concomitant]
     Route: 065
     Dates: start: 20000101
  6. ALBUTEROL [Concomitant]
     Route: 065
  7. SPIRIVA [Concomitant]
     Route: 065
  8. ADVAIR DISKUS 100/50 [Concomitant]
     Route: 065
  9. LEVOXYL [Concomitant]
     Route: 065
  10. ZOCOR [Concomitant]
     Route: 048
  11. FUROSEMIDE [Concomitant]
     Route: 065
     Dates: start: 20050101
  12. KLOR-CON [Concomitant]
     Route: 065
     Dates: start: 20050101
  13. RESTASIS [Concomitant]
     Route: 065
     Dates: start: 20050101
  14. MURO 128 OPHTHALMIC OINTMENT [Concomitant]
     Route: 065
  15. LEVAQUIN [Concomitant]
     Route: 065
     Dates: start: 20061130
  16. ZYRTEC [Concomitant]
     Route: 065
     Dates: start: 20060620
  17. FLONASE [Concomitant]
     Route: 065
  18. PREDNISONE [Concomitant]
     Route: 065
     Dates: start: 20060401, end: 20060601
  19. NEURONTIN [Concomitant]
     Route: 065
  20. VAGIFEM [Concomitant]
     Route: 065
     Dates: start: 20040901
  21. CLIMARA [Concomitant]
     Route: 065
     Dates: end: 20020809

REACTIONS (12)
  - ANAEMIA POSTOPERATIVE [None]
  - CRYPTOGENIC ORGANISING PNEUMONIA [None]
  - ECZEMA [None]
  - EMPHYSEMA [None]
  - FUNGAL INFECTION [None]
  - HYPOXIA [None]
  - INTERSTITIAL LUNG DISEASE [None]
  - OBLITERATIVE BRONCHIOLITIS [None]
  - OSTEONECROSIS [None]
  - OSTEOPENIA [None]
  - RESORPTION BONE INCREASED [None]
  - TEMPOROMANDIBULAR JOINT SYNDROME [None]
